FAERS Safety Report 5200274-3 (Version None)
Quarter: 2007Q1

REPORT INFORMATION
  Report Type: 
  Country: None (occurrence: None)
  Receive Date: 20070103
  Receipt Date: 20061220
  Transmission Date: 20070707
  Serious: Yes (Disabling, Other)
  Sender: FDA-Public Use
  Company Number: 2006SI000180

PATIENT
  Age: 78 Year
  Sex: Female
  Weight: 58 kg

DRUGS (10)
  1. CUBICIN [Suspect]
     Indication: EXTRADURAL ABSCESS
     Dosage: 500 MG;Q24H; IV
     Route: 042
  2. CUBICIN [Suspect]
     Indication: OSTEOMYELITIS
     Dosage: 500 MG;Q24H; IV
     Route: 042
  3. CUBICIN [Suspect]
     Indication: STAPHYLOCOCCAL INFECTION
     Dosage: 500 MG;Q24H; IV
     Route: 042
  4. CUBICIN [Suspect]
     Indication: STAPHYLOCOCCAL SEPSIS
     Dosage: 500 MG;Q24H; IV
     Route: 042
  5. VANCOMYCIN [Concomitant]
  6. ALBUMIN (HUMAN) [Concomitant]
  7. DOPAMINE HCL [Concomitant]
  8. LEVOTHYROXINE SODIUM [Concomitant]
  9. PROPAFENONE HCL [Concomitant]
  10. METHOCABAMOL [Concomitant]

REACTIONS (6)
  - BLINDNESS TRANSIENT [None]
  - CEREBRAL ATROPHY [None]
  - CEREBRAL ISCHAEMIA [None]
  - GLIOSIS [None]
  - IRITIS [None]
  - VITRITIS [None]
